FAERS Safety Report 12524049 (Version 1)
Quarter: 2016Q3

REPORT INFORMATION
  Report Type: Spontaneous
  Country: FR (occurrence: FR)
  Receive Date: 20160704
  Receipt Date: 20160704
  Transmission Date: 20161109
  Serious: Yes (Life-Threatening, Hospitalization)
  Sender: FDA-Public Use
  Company Number: FR-ROCHE-1787457

PATIENT
  Age: 32 Year
  Sex: Female
  Weight: 50 kg

DRUGS (3)
  1. TERCIAN [Suspect]
     Active Substance: CYAMEMAZINE
     Indication: PRODUCT USED FOR UNKNOWN INDICATION
     Dosage: IN A SINGLE ADMINISTRATION?DOSE: 100MG
     Route: 048
     Dates: start: 20160305, end: 20160305
  2. VALIUM [Suspect]
     Active Substance: DIAZEPAM
     Indication: PRODUCT USED FOR UNKNOWN INDICATION
     Dosage: IN A SINGLE ADMINISTRATION?DOSE: 10 MG
     Route: 048
     Dates: start: 20160305, end: 20160305
  3. ZOPICLONE [Suspect]
     Active Substance: ZOPICLONE
     Indication: PRODUCT USED FOR UNKNOWN INDICATION
     Dosage: IN A SINGLE ADMINISTRATION?DOSE: 7.5 MG
     Route: 048
     Dates: start: 20160305, end: 20160305

REACTIONS (2)
  - Toxicity to various agents [Recovered/Resolved]
  - Coma [Recovered/Resolved]

NARRATIVE: CASE EVENT DATE: 20160305
